FAERS Safety Report 11083335 (Version 1)
Quarter: 2015Q2

REPORT INFORMATION
  Report Type: Spontaneous
  Country: US (occurrence: US)
  Receive Date: 20150501
  Receipt Date: 20150501
  Transmission Date: 20150821
  Serious: No
  Sender: FDA-Public Use
  Company Number: US-ABBVIE-15P-163-1378022-00

PATIENT
  Age: 67 Year
  Sex: Male
  Weight: 65.83 kg

DRUGS (1)
  1. ANDROGEL [Suspect]
     Active Substance: TESTOSTERONE
     Indication: SECONDARY HYPOGONADISM
     Dosage: 2 PUMPS DAILY, BUT 1 IN AM AND 1 IN PM.
     Route: 061
     Dates: start: 20150414, end: 20150416

REACTIONS (3)
  - Pollakiuria [Recovered/Resolved]
  - Skin abrasion [Recovered/Resolved]
  - Skin burning sensation [Recovered/Resolved]

NARRATIVE: CASE EVENT DATE: 201504
